FAERS Safety Report 5477941-X (Version None)
Quarter: 2007Q4

REPORT INFORMATION
  Report Type: 
  Country: None (occurrence: None)
  Receive Date: 20071005
  Receipt Date: 20070926
  Transmission Date: 20080405
  Serious: Yes (Other)
  Sender: FDA-Public Use
  Company Number: PHHO2007BR16066

PATIENT
  Age: 53 Year
  Sex: Female

DRUGS (1)
  1. GALVUS MET [Suspect]
     Dosage: 100/850 MG/DAILY
     Route: 048

REACTIONS (4)
  - COLD SWEAT [None]
  - DIARRHOEA [None]
  - NAUSEA [None]
  - SYNCOPE [None]
